FAERS Safety Report 8154272-0 (Version None)
Quarter: 2012Q1

REPORT INFORMATION
  Report Type: 
  Country: None (occurrence: None)
  Receive Date: 20120217
  Receipt Date: 20120217
  Transmission Date: 20120608
  Serious: No
  Sender: FDA-Public Use
  Company Number: None

PATIENT
  Age: 58 Year
  Sex: Male
  Weight: 92.1 kg

DRUGS (1)
  1. TELAPREVIR [Suspect]
     Indication: HEPATITIS C
     Dosage: 2 TAB PO
     Route: 048
     Dates: start: 20111103

REACTIONS (7)
  - ANAL PRURITUS [None]
  - FATIGUE [None]
  - NAUSEA [None]
  - EMOTIONAL DISORDER [None]
  - VOMITING [None]
  - DRY SKIN [None]
  - MOOD SWINGS [None]
